FAERS Safety Report 18404946 (Version 4)
Quarter: 2021Q1

REPORT INFORMATION
  Report Type: Spontaneous
  Country: US (occurrence: US)
  Receive Date: 20201020
  Receipt Date: 20210104
  Transmission Date: 20210419
  Serious: No
  Sender: FDA-Public Use
  Company Number: US-APOTEX-2020AP019147

PATIENT
  Age: 67 Year
  Sex: Female

DRUGS (1)
  1. FENTANYL TRANSDERMAL SYSTEM [Suspect]
     Active Substance: FENTANYL
     Indication: ANALGESIC THERAPY
     Dosage: 1 DOSAGE FORM, FOR 72 HOURS OR EVERY 3 DAYS
     Route: 062

REACTIONS (6)
  - Drug ineffective [Unknown]
  - Therapy interrupted [Unknown]
  - Product availability issue [Unknown]
  - Drug screen negative [Not Recovered/Not Resolved]
  - Pain [Not Recovered/Not Resolved]
  - Product storage error [Unknown]
